FAERS Safety Report 9186731 (Version 1)
Quarter: 2012Q4

REPORT INFORMATION
  Report Type: 
  Country: US (occurrence: US)
  Receive Date: 20121102
  Receipt Date: 20121102
  Transmission Date: 20130627
  Serious: No
  Sender: FDA-Public Use
  Company Number: US-ASTELLAS-2012US005936

PATIENT
  Age: 43 None
  Sex: Male

DRUGS (2)
  1. MYCAMINE [Suspect]
     Indication: ABDOMINAL PAIN
     Dosage: 100 mg, Unknown/D
     Route: 042
     Dates: start: 20120523, end: 20120621
  2. MYCAMINE [Suspect]
     Indication: PROPHYLAXIS

REACTIONS (1)
  - Off label use [Unknown]
